FAERS Safety Report 7548102-5 (Version None)
Quarter: 2011Q2

REPORT INFORMATION
  Report Type: 
  Country: None (occurrence: None)
  Receive Date: 20110615
  Receipt Date: 20110523
  Transmission Date: 20111010
  Serious: Yes (Hospitalization, Other)
  Sender: FDA-Public Use
  Company Number: US-BAYER-2010-002221

PATIENT
  Sex: Female
  Weight: 83.9 kg

DRUGS (2)
  1. YAZ [Suspect]
     Indication: POLYCYSTIC OVARIES
     Dosage: UNK
     Dates: start: 20040801, end: 20050801
  2. GLUCOPHAGE [Concomitant]
     Dosage: 1000 MG, BID
     Route: 048

REACTIONS (2)
  - DEPRESSION [None]
  - CHOLELITHIASIS [None]
